FAERS Safety Report 6219118-6 (Version None)
Quarter: 2009Q2

REPORT INFORMATION
  Report Type: 
  Country: None (occurrence: None)
  Receive Date: 20090605
  Receipt Date: 20090529
  Transmission Date: 20091009
  Serious: No
  Sender: FDA-Public Use
  Company Number: 2009006036

PATIENT
  Sex: Male

DRUGS (3)
  1. FENTORA [Suspect]
     Indication: MIGRAINE
     Dosage: (300 MCG,1 TABLET EVERY 3 HRS AS NEEDED), BU
     Route: 002
  2. FENTANYL CITRATE [Suspect]
     Indication: MIGRAINE
     Dosage: BU
     Route: 002
  3. AVINZA [Concomitant]

REACTIONS (2)
  - CONTRAINDICATION TO MEDICAL TREATMENT [None]
  - DRUG PRESCRIBING ERROR [None]
